FAERS Safety Report 9852590 (Version 3)
Quarter: 2014Q2

REPORT INFORMATION
  Report Type: Spontaneous
  Country: BR (occurrence: BR)
  Receive Date: 20140129
  Receipt Date: 20140411
  Transmission Date: 20141212
  Serious: Yes (Other)
  Sender: FDA-Public Use
  Company Number: BR-JNJFOC-20130803776

PATIENT
  Sex: Female
  Weight: 63 kg

DRUGS (17)
  1. REMICADE [Suspect]
     Indication: CROHN^S DISEASE
     Dosage: INTERVAL 10 DAYS
     Route: 042
     Dates: start: 201212
  2. REMICADE [Suspect]
     Indication: CROHN^S DISEASE
     Route: 042
     Dates: start: 20140113
  3. REMICADE [Suspect]
     Indication: CROHN^S DISEASE
     Route: 042
     Dates: start: 20140311
  4. REMICADE [Suspect]
     Indication: CROHN^S DISEASE
     Route: 042
     Dates: start: 20130801
  5. REMICADE [Suspect]
     Indication: CROHN^S DISEASE
     Route: 042
     Dates: start: 20131006
  6. REMICADE [Suspect]
     Indication: CROHN^S DISEASE
     Route: 042
  7. REMICADE [Suspect]
     Indication: CROHN^S DISEASE
     Route: 042
  8. REMICADE [Suspect]
     Indication: CROHN^S DISEASE
     Route: 042
     Dates: start: 2011
  9. REMICADE [Suspect]
     Indication: CROHN^S DISEASE
     Dosage: CONFLICTINGLY REPORTED AS ONCE IN 2 MINUTES
     Route: 042
     Dates: start: 2013
  10. DIOVAN HCT [Concomitant]
     Indication: BLOOD PRESSURE FLUCTUATION
     Route: 065
  11. MESALAZINE [Concomitant]
     Indication: CROHN^S DISEASE
     Route: 065
  12. MESALAZINE [Concomitant]
     Indication: CROHN^S DISEASE
     Route: 065
     Dates: start: 201212
  13. MESALAZINE [Concomitant]
     Indication: CROHN^S DISEASE
     Route: 065
  14. PANTOPRAZOLE [Concomitant]
     Indication: GASTRIC DISORDER
     Route: 065
  15. ESPRADEN [Concomitant]
     Indication: ANTIDEPRESSANT THERAPY
     Route: 065
     Dates: start: 201212
  16. STILNOX [Concomitant]
     Indication: SLEEP DISORDER THERAPY
     Route: 065
  17. PURAN T4 [Concomitant]
     Indication: THYROID DISORDER
     Route: 065

REACTIONS (14)
  - Thrombosis [Unknown]
  - Pain [Not Recovered/Not Resolved]
  - Swelling [Not Recovered/Not Resolved]
  - Arthralgia [Not Recovered/Not Resolved]
  - Fatigue [Not Recovered/Not Resolved]
  - Dysphonia [Recovering/Resolving]
  - Diarrhoea [Not Recovered/Not Resolved]
  - Malaise [Not Recovered/Not Resolved]
  - Insomnia [Not Recovered/Not Resolved]
  - Gastrointestinal disorder [Not Recovered/Not Resolved]
  - Pain in extremity [Not Recovered/Not Resolved]
  - Hypersensitivity [Unknown]
  - Nausea [Unknown]
  - Infusion related reaction [Unknown]
